FAERS Safety Report 21229037 (Version 1)
Quarter: 2022Q3

REPORT INFORMATION
  Report Type: Spontaneous
  Country: US (occurrence: US)
  Receive Date: 20220818
  Receipt Date: 20220818
  Transmission Date: 20221027
  Serious: Yes (Hospitalization, Disabling, Other)
  Sender: FDA-Public Use
  Company Number: US-ABBVIE-22K-163-4503980-00

PATIENT
  Sex: Female

DRUGS (2)
  1. HUMIRA [Suspect]
     Active Substance: ADALIMUMAB
     Indication: Psoriatic arthropathy
     Route: 058
     Dates: start: 2015, end: 2018
  2. HUMIRA [Suspect]
     Active Substance: ADALIMUMAB
     Indication: Psoriatic arthropathy
     Route: 058
     Dates: start: 2018

REACTIONS (12)
  - Surgery [Unknown]
  - Musculoskeletal disorder [Unknown]
  - Excessive skin [Unknown]
  - Product administered at inappropriate site [Unknown]
  - Skin disorder [Unknown]
  - Product use complaint [Unknown]
  - Wrong technique in product usage process [Unknown]
  - Discomfort [Unknown]
  - Unevaluable event [Unknown]
  - Injection site erythema [Unknown]
  - Injection site pain [Unknown]
  - Injection site papule [Unknown]
